FAERS Safety Report 20110192 (Version 2)
Quarter: 2021Q4

REPORT INFORMATION
  Report Type: Spontaneous
  Country: US (occurrence: None)
  Receive Date: 20211124
  Receipt Date: 20211221
  Transmission Date: 20220303
  Serious: No
  Sender: FDA-Public Use
  Company Number: 2021A821100

PATIENT
  Age: 947 Month
  Sex: Female

DRUGS (2)
  1. BUDESONIDE\FORMOTEROL\GLYCOPYRRONIUM [Suspect]
     Active Substance: BUDESONIDE\FORMOTEROL\GLYCOPYRRONIUM
     Indication: Chronic obstructive pulmonary disease
     Dosage: 160/9/4.8 MCGS, TWO PUFFS, TWICE DAILY
     Route: 055
     Dates: start: 202110
  2. SYMBICORT [Suspect]
     Active Substance: BUDESONIDE\FORMOTEROL FUMARATE DIHYDRATE
     Indication: Chronic obstructive pulmonary disease
     Dosage: 160/4.5 MCGS, 2 PUFFS, TWICE DAILY
     Route: 055
     Dates: start: 2016

REACTIONS (5)
  - Urinary tract infection [Unknown]
  - Urinary retention [Unknown]
  - General physical health deterioration [Unknown]
  - Device lead issue [Unknown]
  - Wrong technique in device usage process [Unknown]

NARRATIVE: CASE EVENT DATE: 20211101
